FAERS Safety Report 6207373-8 (Version None)
Quarter: 2009Q2

REPORT INFORMATION
  Report Type: 
  Country: None (occurrence: None)
  Receive Date: 20090528
  Receipt Date: 20090518
  Transmission Date: 20091009
  Serious: Yes (Life-Threatening)
  Sender: FDA-Public Use
  Company Number: JP-PFIZER INC-2009189483

PATIENT
  Age: 82 Year

DRUGS (10)
  1. AMLODIPINE BESYLATE [Suspect]
     Indication: HYPERTENSION
     Dosage: 10 MG, 1X/DAY
     Route: 048
     Dates: start: 20070319
  2. TENORMIN [Suspect]
     Indication: HYPERTENSION
     Dosage: 50 MG, 1X/DAY
     Route: 048
     Dates: start: 20050125, end: 20061002
  3. TENORMIN [Suspect]
     Dosage: 100 MG, UNK
     Route: 048
     Dates: start: 20061002
  4. BLOPRESS [Suspect]
     Indication: HYPERTENSION
     Dosage: 12 MG, 1X/DAY
     Route: 048
     Dates: start: 20051227
  5. ASPIRIN [Concomitant]
     Dosage: 100 MG, 1X/DAY
     Route: 048
     Dates: start: 20020723
  6. CLARITHROMYCIN [Concomitant]
     Dosage: 200 MG, 1X/DAY
     Route: 048
     Dates: start: 20061030
  7. LEVOTHYROXINE [Concomitant]
     Indication: THYROID CANCER
     Dosage: 50 MICROGRAM, UNK
     Route: 048
     Dates: start: 20061127
  8. DEPAS [Concomitant]
     Dosage: 1 MG, 1X/DAY
     Route: 048
     Dates: start: 20070115
  9. SEREVENT [Concomitant]
     Dosage: 100 MICROGRAM, UNK
     Dates: start: 20070219
  10. OMEPRAL [Concomitant]
     Dosage: 20 MG, 1X/DAY
     Route: 048
     Dates: start: 20071210

REACTIONS (3)
  - HYPERKALAEMIA [None]
  - RENAL FAILURE ACUTE [None]
  - SHOCK [None]
